FAERS Safety Report 15342745 (Version 1)
Quarter: 2018Q3

REPORT INFORMATION
  Report Type: Spontaneous
  Country: FR (occurrence: FR)
  Receive Date: 20180903
  Receipt Date: 20180903
  Transmission Date: 20181010
  Serious: Yes (Hospitalization)
  Sender: FDA-Public Use
  Company Number: FR-ROCHE-2178537

PATIENT
  Age: 70 Year
  Sex: Female

DRUGS (3)
  1. RITUXIMAB. [Suspect]
     Active Substance: RITUXIMAB
     Indication: B-CELL LYMPHOMA
     Dosage: MOST RECENT DOSE ON 13/JUN/2018
     Route: 065
     Dates: start: 20180221
  2. OXALIPLATINE [Suspect]
     Active Substance: OXALIPLATIN
     Indication: B-CELL LYMPHOMA
     Dosage: MOST RECENT DOSE ON 13/JUN/2018
     Route: 065
     Dates: start: 20180221
  3. GEMZAR [Suspect]
     Active Substance: GEMCITABINE HYDROCHLORIDE
     Indication: B-CELL LYMPHOMA
     Dosage: MOST RECENT DOSE ON 13/JUN/2018
     Route: 041
     Dates: start: 20180221

REACTIONS (3)
  - Confusional state [Recovered/Resolved]
  - Encephalopathy [Recovered/Resolved]
  - Agitation [Recovered/Resolved]

NARRATIVE: CASE EVENT DATE: 20180709
